FAERS Safety Report 8385916 (Version 3)
Quarter: 2012Q4

REPORT INFORMATION
  Report Type: 
  Country: US (occurrence: US)
  Receive Date: 20120202
  Receipt Date: 20121015
  Transmission Date: 20130627
  Serious: Yes (Death)
  Sender: FDA-Public Use
  Company Number: PHEH2012US002799

PATIENT
  Age: 51 Year
  Sex: Male

DRUGS (1)
  1. ZOMETA [Suspect]
     Indication: METASTASES TO BONE
     Dosage: 4 mg, TIW
     Route: 030

REACTIONS (2)
  - Neoplasm progression [Fatal]
  - Malignant neoplasm progression [Fatal]
